FAERS Safety Report 4314925-9 (Version None)
Quarter: 2004Q1

REPORT INFORMATION
  Report Type: 
  Country: None (occurrence: None)
  Receive Date: 20040310
  Receipt Date: 20040310
  Transmission Date: 20041129
  Serious: Yes (Other)
  Sender: FDA-Public Use
  Company Number: None

PATIENT
  Age: 33 Year
  Sex: Female

DRUGS (2)
  1. LEVAQUIN [Suspect]
     Indication: PNEUMONIA
     Dosage: QD PO
     Route: 048
     Dates: start: 20031111
  2. LEVAQUIN [Suspect]
     Indication: PNEUMONIA
     Dosage: QD PO
     Route: 048
     Dates: start: 20031112

REACTIONS (1)
  - DRUG HYPERSENSITIVITY [None]
